FAERS Safety Report 11788159 (Version 8)
Quarter: 2016Q2

REPORT INFORMATION
  Report Type: Report from Study
  Country: CA (occurrence: CA)
  Receive Date: 20151201
  Receipt Date: 20160408
  Transmission Date: 20160815
  Serious: Yes (Hospitalization, Other)
  Sender: FDA-Public Use
  Company Number: CA-ROCHE-1203190

PATIENT
  Age: 43 Year
  Sex: Female
  Weight: 62 kg

DRUGS (7)
  1. METHOTREXATE [Concomitant]
     Active Substance: METHOTREXATE
  2. PROGESTERONE. [Concomitant]
     Active Substance: PROGESTERONE
  3. ACTEMRA [Suspect]
     Active Substance: TOCILIZUMAB
     Indication: RHEUMATOID ARTHRITIS
     Route: 042
  4. ACTEMRA [Suspect]
     Active Substance: TOCILIZUMAB
     Route: 042
     Dates: start: 20110215
  5. ESTRACE [Concomitant]
     Active Substance: ESTRADIOL
  6. ACTEMRA [Suspect]
     Active Substance: TOCILIZUMAB
     Route: 042
     Dates: start: 20131205
  7. CELEBREX [Concomitant]
     Active Substance: CELECOXIB

REACTIONS (13)
  - Tendonitis [Recovering/Resolving]
  - Arthralgia [Unknown]
  - Skin ulcer [Recovered/Resolved]
  - Blood pressure systolic increased [Unknown]
  - Oropharyngeal pain [Not Recovered/Not Resolved]
  - Influenza like illness [Not Recovered/Not Resolved]
  - Acne [Unknown]
  - Musculoskeletal disorder [Unknown]
  - Sinusitis [Unknown]
  - Rhinorrhoea [Not Recovered/Not Resolved]
  - Multiple sclerosis [Not Recovered/Not Resolved]
  - Myelitis [Not Recovered/Not Resolved]
  - Bronchitis [Unknown]

NARRATIVE: CASE EVENT DATE: 20130219
